FAERS Safety Report 7273646-3 (Version None)
Quarter: 2011Q1

REPORT INFORMATION
  Report Type: 
  Country: None (occurrence: None)
  Receive Date: 20110203
  Receipt Date: 20110203
  Transmission Date: 20110831
  Serious: Yes (Hospitalization)
  Sender: FDA-Public Use
  Company Number: AT-ABBOTT-11P-009-0697500-00

PATIENT
  Sex: Male
  Weight: 80 kg

DRUGS (7)
  1. HUMIRA [Suspect]
     Dates: start: 20110117
  2. HUMIRA [Suspect]
     Dosage: SINGLE INJECTION
     Dates: start: 20110117, end: 20110117
  3. HUMIRA [Suspect]
     Indication: CROHN'S DISEASE
     Dosage: 160/80 MG LOADING DOSE
     Route: 058
     Dates: start: 20100330, end: 20100330
  4. HUMIRA [Suspect]
     Dates: start: 20100330, end: 20110117
  5. ENTOCORT EC [Concomitant]
     Indication: CROHN'S DISEASE
     Route: 048
     Dates: start: 20101222, end: 20110125
  6. MEXALEN [Concomitant]
     Indication: PAIN
     Dosage: 4 IN 1 DAY AS NEEDED
  7. RHINOMER [Concomitant]
     Indication: PRODUCT USED FOR UNKNOWN INDICATION
     Dosage: AS NEEDED

REACTIONS (9)
  - MALAISE [None]
  - DIARRHOEA [None]
  - ILEITIS [None]
  - ILEAL ULCER [None]
  - ABDOMINAL PAIN [None]
  - ABDOMINAL PAIN LOWER [None]
  - WEIGHT DECREASED [None]
  - NAUSEA [None]
  - DRUG INEFFECTIVE [None]
